FAERS Safety Report 22214358 (Version 2)
Quarter: 2023Q2

REPORT INFORMATION
  Report Type: Report from Study
  Country: US (occurrence: US)
  Receive Date: 20230414
  Receipt Date: 20230418
  Transmission Date: 20230721
  Serious: Yes (Hospitalization)
  Sender: FDA-Public Use
  Company Number: US-KYOWAKIRIN-2022BKK014531

PATIENT

DRUGS (7)
  1. MOGAMULIZUMAB [Suspect]
     Active Substance: MOGAMULIZUMAB
     Indication: Cutaneous T-cell lymphoma
     Dosage: 2 MG/KG, C1D1
     Route: 042
     Dates: start: 20220811, end: 20220811
  2. MOGAMULIZUMAB [Suspect]
     Active Substance: MOGAMULIZUMAB
     Dosage: 2 MG/KG, (C1D8)
     Route: 042
     Dates: start: 20220818, end: 20220818
  3. MOGAMULIZUMAB [Suspect]
     Active Substance: MOGAMULIZUMAB
     Dosage: 2 MG/KG, (C1D15)
     Route: 042
     Dates: start: 20220825, end: 20220825
  4. MOGAMULIZUMAB [Suspect]
     Active Substance: MOGAMULIZUMAB
     Dosage: 2 MG/KG ,(C1D22)
     Route: 042
     Dates: start: 20220901, end: 20220901
  5. MOGAMULIZUMAB [Suspect]
     Active Substance: MOGAMULIZUMAB
     Dosage: 2 MG/KG (C2D1)
     Route: 042
     Dates: start: 20220908, end: 20220908
  6. MOGAMULIZUMAB [Suspect]
     Active Substance: MOGAMULIZUMAB
     Dosage: 2 MG/KG (C2D1)
     Route: 042
     Dates: start: 20220908, end: 20221007
  7. MOGAMULIZUMAB [Suspect]
     Active Substance: MOGAMULIZUMAB
     Dosage: 2 MG/KG (C2D1)
     Route: 042
     Dates: start: 20220907, end: 20221006

REACTIONS (1)
  - Staphylococcal skin infection [Recovered/Resolved]

NARRATIVE: CASE EVENT DATE: 20220914
